FAERS Safety Report 9225212 (Version 1)
Quarter: 2013Q2

REPORT INFORMATION
  Report Type: Spontaneous
  Country: US (occurrence: None)
  Receive Date: 20130410
  Receipt Date: 20130410
  Transmission Date: 20140414
  Serious: Yes (Life-Threatening, Hospitalization, Disabling)
  Sender: FDA-Public Use
  Company Number: None

PATIENT
  Age: 69 Year
  Sex: Male
  Weight: 90.72 kg

DRUGS (6)
  1. PRADAXA [Suspect]
     Indication: ATRIAL FIBRILLATION
     Route: 048
     Dates: start: 20120901, end: 20130330
  2. AVAPRO [Concomitant]
  3. METOPROLOL [Concomitant]
  4. LASIX [Concomitant]
  5. DIGOXIN [Concomitant]
  6. AMIODARONE [Concomitant]

REACTIONS (2)
  - Embolic stroke [None]
  - Atrial fibrillation [None]
